FAERS Safety Report 8052450-2 (Version None)
Quarter: 2012Q1

REPORT INFORMATION
  Report Type: 
  Country: None (occurrence: None)
  Receive Date: 20120118
  Receipt Date: 20120116
  Transmission Date: 20120608
  Serious: Yes (Other)
  Sender: FDA-Public Use
  Company Number: US-BAYER-2011-060855

PATIENT
  Age: 38 Year
  Sex: Female
  Weight: 66.213 kg

DRUGS (1)
  1. MIRENA [Suspect]
     Indication: CONTRACEPTION
     Dosage: 20 MCG/24HR, CONT
     Route: 015
     Dates: start: 20110623, end: 20110721

REACTIONS (10)
  - POST PROCEDURAL HAEMORRHAGE [None]
  - DEVICE DISLOCATION [None]
  - ASTHENIA [None]
  - DIZZINESS [None]
  - PRESYNCOPE [None]
  - ABDOMINAL PAIN LOWER [None]
  - MUSCLE SPASMS [None]
  - UTERINE PERFORATION [None]
  - HOT FLUSH [None]
  - NAUSEA [None]
